FAERS Safety Report 22198313 (Version 1)
Quarter: 2023Q2

REPORT INFORMATION
  Report Type: Spontaneous
  Country: US (occurrence: None)
  Receive Date: 20230411
  Receipt Date: 20230411
  Transmission Date: 20230721
  Serious: Yes (Hospitalization, Other)
  Sender: FDA-Public Use
  Company Number: None

PATIENT
  Age: 51 Year
  Sex: Female
  Weight: 95 kg

DRUGS (1)
  1. HECTOROL [Suspect]
     Active Substance: DOXERCALCIFEROL
     Indication: Hyperparathyroidism secondary
     Dosage: OTHER FREQUENCY : EVERY TREATMENT;?
     Route: 040
     Dates: start: 20230403, end: 20230403

REACTIONS (8)
  - Contrast media reaction [None]
  - Blood pressure systolic increased [None]
  - Dyspnoea [None]
  - Chest pain [None]
  - Chest discomfort [None]
  - Feeling hot [None]
  - Nausea [None]
  - Contrast media allergy [None]

NARRATIVE: CASE EVENT DATE: 20230403
